FAERS Safety Report 8604210-9 (Version None)
Quarter: 2012Q3

REPORT INFORMATION
  Report Type: 
  Country: None (occurrence: None)
  Receive Date: 20120820
  Receipt Date: 20120814
  Transmission Date: 20120928
  Serious: Yes (Other)
  Sender: FDA-Public Use
  Company Number: US-PFIZER INC-2012199030

PATIENT
  Age: 54 Year
  Sex: Female
  Weight: 72.6 kg

DRUGS (4)
  1. SYNTHROID [Suspect]
     Dosage: 125 UG, 1X/DAY
     Route: 048
     Dates: start: 20120601
  2. SYNTHROID [Suspect]
     Indication: HYPOTHYROIDISM
     Dosage: 112 UG, 1X/DAY
     Route: 048
     Dates: end: 20120601
  3. BENICAR [Concomitant]
     Indication: HYPERTENSION
     Dosage: UNK
  4. ESTRING [Suspect]
     Indication: VULVOVAGINAL DRYNESS
     Dosage: UNK, ONCE IN THREE MONTHS
     Route: 067
     Dates: start: 20111001

REACTIONS (3)
  - VISUAL IMPAIRMENT [None]
  - CONDITION AGGRAVATED [None]
  - HYPOTHYROIDISM [None]
